FAERS Safety Report 6948626-5 (Version None)
Quarter: 2010Q3

REPORT INFORMATION
  Report Type: 
  Country: None (occurrence: None)
  Receive Date: 20100828
  Receipt Date: 20091127
  Transmission Date: 20110219
  Serious: No
  Sender: FDA-Public Use
  Company Number: US-ABBOTT-09P-163-0610964-00

PATIENT
  Sex: Male

DRUGS (1)
  1. NIASPAN [Suspect]
     Indication: BLOOD CHOLESTEROL INCREASED
     Dates: start: 20091120, end: 20091127

REACTIONS (5)
  - MALAISE [None]
  - NAUSEA [None]
  - RASH PAPULAR [None]
  - SKIN FISSURES [None]
  - VOMITING [None]
